FAERS Safety Report 6348832-7 (Version None)
Quarter: 2009Q3

REPORT INFORMATION
  Report Type: 
  Country: None (occurrence: None)
  Receive Date: 20090908
  Receipt Date: 20090821
  Transmission Date: 20100115
  Serious: Yes (Other)
  Sender: FDA-Public Use
  Company Number: DSU-2009-01764

PATIENT
  Age: 66 Year
  Sex: Female
  Weight: 63.5036 kg

DRUGS (4)
  1. WELCHOL [Suspect]
     Indication: HYPERCHOLESTEROLAEMIA
     Dosage: 1875 MG (1875 MG, QD), PER ORAL
     Route: 048
     Dates: start: 20090806, end: 20090820
  2. ESTRADIOL [Suspect]
  3. LEVOXYL (LEVOTHYROXINE SODIUM) (LEVOTHYROXINE SODIUM) [Concomitant]
  4. MAXZIDE (HYDROCHLOROTHIAZIDE, TRIAMTERENE) (HYDROCHLOROTHIAZIDE, TRIAM [Concomitant]

REACTIONS (16)
  - ABDOMINAL DISTENSION [None]
  - ASTHENIA [None]
  - BACK PAIN [None]
  - BLOOD PRESSURE INCREASED [None]
  - CHEST PAIN [None]
  - COUGH [None]
  - DYSPHAGIA [None]
  - DYSPNOEA [None]
  - EPISTAXIS [None]
  - HYPERACUSIS [None]
  - HYPOACUSIS [None]
  - HYPOVENTILATION [None]
  - LOCAL SWELLING [None]
  - MUSCLE SPASMS [None]
  - RESPIRATORY DISORDER [None]
  - THROAT IRRITATION [None]
